FAERS Safety Report 5071350-3 (Version None)
Quarter: 2006Q3

REPORT INFORMATION
  Report Type: 
  Country: None (occurrence: None)
  Receive Date: 20060804
  Receipt Date: 20060118
  Transmission Date: 20061208
  Serious: Yes (Hospitalization)
  Sender: FDA-Public Use
  Company Number: US-AMGEN-US165361

PATIENT
  Sex: Male

DRUGS (6)
  1. ARANESP [Suspect]
     Indication: RENAL FAILURE CHRONIC
     Dates: start: 20050601
  2. DOXAZOSIN [Concomitant]
  3. SINGULAIR [Concomitant]
  4. VERAPAMIL [Concomitant]
  5. FUROSEMIDE [Concomitant]
  6. HALOBETASOL [Concomitant]

REACTIONS (4)
  - ECZEMA [None]
  - HYPERTENSION [None]
  - PRURITUS [None]
  - THERAPEUTIC RESPONSE DECREASED [None]
